FAERS Safety Report 19371771 (Version 3)
Quarter: 2022Q1

REPORT INFORMATION
  Report Type: Spontaneous
  Country: US (occurrence: US)
  Receive Date: 20210603
  Receipt Date: 20220228
  Transmission Date: 20220423
  Serious: No
  Sender: FDA-Public Use
  Company Number: US-SA-SAC20210601000818

PATIENT
  Sex: Female

DRUGS (1)
  1. DUPIXENT [Suspect]
     Active Substance: DUPILUMAB
     Indication: Dermatitis allergic
     Dosage: 300 MG, QOW
     Route: 058
     Dates: start: 20200402

REACTIONS (6)
  - Eczema [Unknown]
  - Sleep disorder [Unknown]
  - Drug ineffective [Unknown]
  - Off label use [Unknown]
  - Rash [Unknown]
  - Discomfort [Unknown]
